FAERS Safety Report 10767281 (Version 1)
Quarter: 2015Q1

REPORT INFORMATION
  Report Type: Spontaneous
  Country: US (occurrence: US)
  Receive Date: 20150205
  Receipt Date: 20150205
  Transmission Date: 20150721
  Serious: No
  Sender: FDA-Public Use
  Company Number: US-GALDERMA-US14002627

PATIENT
  Age: 17 Year
  Sex: Female

DRUGS (5)
  1. PURPOSE [Suspect]
     Active Substance: OCTINOXATE\OCTISALATE\OXYBENZONE
     Indication: THERAPEUTIC SKIN CARE TOPICAL
     Route: 061
     Dates: start: 20140711
  2. NEUTROGENA CLEANSER WITH SALICYLIC ACID [Suspect]
     Active Substance: SALICYLIC ACID
     Indication: ACNE
  3. EPIDUO [Suspect]
     Active Substance: ADAPALENE\BENZOYL PEROXIDE
     Indication: ACNE
     Dosage: 0.1%/2.5%
     Route: 061
     Dates: start: 20140613
  4. NEUTROGENA CLEANSER WITH SALICYLIC ACID [Suspect]
     Active Substance: SALICYLIC ACID
     Indication: THERAPEUTIC SKIN CARE TOPICAL
     Route: 061
     Dates: start: 20140613, end: 20140711
  5. PURPOSE [Suspect]
     Active Substance: OCTINOXATE\OCTISALATE\OXYBENZONE
     Indication: ACNE

REACTIONS (4)
  - Pruritus [Not Recovered/Not Resolved]
  - Erythema [Not Recovered/Not Resolved]
  - Swelling face [Not Recovered/Not Resolved]
  - Acne [Not Recovered/Not Resolved]

NARRATIVE: CASE EVENT DATE: 201406
